FAERS Safety Report 5330433-0 (Version None)
Quarter: 2007Q2

REPORT INFORMATION
  Report Type: 
  Country: None (occurrence: None)
  Receive Date: 20070515
  Receipt Date: 20070503
  Transmission Date: 20071010
  Serious: Yes (Hospitalization)
  Sender: FDA-Public Use
  Company Number: 220003M07SWE

PATIENT
  Age: 13 Year
  Sex: Female

DRUGS (1)
  1. SAIZEN [Suspect]
     Indication: GROWTH HORMONE DEFICIENCY
     Dosage: 1.5 MG, 1 IN 1 DAYS
     Dates: start: 20021001

REACTIONS (2)
  - ERYSIPELAS [None]
  - PHARYNGOLARYNGEAL PAIN [None]
